FAERS Safety Report 7941800-0 (Version None)
Quarter: 2011Q4

REPORT INFORMATION
  Report Type: 
  Country: None (occurrence: None)
  Receive Date: 20111128
  Receipt Date: 20111128
  Transmission Date: 20120403
  Serious: Yes (Life-Threatening, Hospitalization)
  Sender: FDA-Public Use
  Company Number: None

PATIENT
  Age: 19 Year
  Sex: Male
  Weight: 68.038 kg

DRUGS (1)
  1. XANAX [Suspect]
     Dosage: 2MG
     Route: 048
     Dates: start: 20090120, end: 20111116

REACTIONS (3)
  - AGGRESSION [None]
  - ANGER [None]
  - IMPRISONMENT [None]
